FAERS Safety Report 5527719-3 (Version None)
Quarter: 2007Q4

REPORT INFORMATION
  Report Type: 
  Country: None (occurrence: None)
  Receive Date: 20071123
  Receipt Date: 20071109
  Transmission Date: 20080405
  Serious: Yes (Hospitalization, Other)
  Sender: FDA-Public Use
  Company Number: 230001J07FRA

PATIENT
  Age: 48 Year
  Sex: Female
  Weight: 61 kg

DRUGS (10)
  1. REBIF [Suspect]
     Indication: MULTIPLE SCLEROSIS
     Dosage: 44 MCG, 3 IN 1 WEEKS ; 22, 3 IN 1 WEEKS
     Dates: start: 20010601, end: 20010101
  2. SULFARLEM (ANETHOLE TRITHIONE) [Concomitant]
  3. ZOLPIDEM /00914901/ [Concomitant]
  4. CLONAZEPAM [Concomitant]
  5. HEXAQUINE (HEXAQUINE) [Concomitant]
  6. DEXERYL /01579901/ [Concomitant]
  7. DIPROSONE [Concomitant]
  8. ESTREVA (ESTRADIOL /00045401/) [Concomitant]
  9. NORGESTIMATE [Concomitant]
  10. PANTOPRAZOLE SODIUM [Concomitant]

REACTIONS (7)
  - ALOPECIA [None]
  - AUTOIMMUNE THYROIDITIS [None]
  - INJECTION SITE NECROSIS [None]
  - INJECTION SITE PAIN [None]
  - LIPOATROPHY [None]
  - MULTIPLE SCLEROSIS RELAPSE [None]
  - SYSTEMIC LUPUS ERYTHEMATOSUS [None]
